FAERS Safety Report 18523109 (Version 2)
Quarter: 2021Q2

REPORT INFORMATION
  Report Type: Spontaneous
  Country: CH (occurrence: CH)
  Receive Date: 20201119
  Receipt Date: 20210607
  Transmission Date: 20210717
  Serious: Yes (Life-Threatening, Hospitalization, Other)
  Sender: FDA-Public Use
  Company Number: CH-BRISTOL-MYERS SQUIBB COMPANY-BMS-2020-096892

PATIENT
  Age: 54 Year
  Sex: Male

DRUGS (10)
  1. NIVOLUMAB [Suspect]
     Active Substance: NIVOLUMAB
     Dosage: 240 MILLIGRAM (FIFTH DOSE)
     Route: 065
     Dates: start: 20180725
  2. NIVOLUMAB [Suspect]
     Active Substance: NIVOLUMAB
     Dosage: 120 MILLIGRAM
     Route: 065
     Dates: start: 20190817
  3. NIVOLUMAB [Suspect]
     Active Substance: NIVOLUMAB
     Dosage: 120 MILLIGRAM
     Route: 065
     Dates: start: 20180625
  4. NIVOLUMAB [Suspect]
     Active Substance: NIVOLUMAB
     Dosage: 6TH DOSE
     Route: 065
     Dates: start: 20180817
  5. DEXAMETHASONE. [Concomitant]
     Active Substance: DEXAMETHASONE
     Dosage: 8 MILLIGRAM
     Route: 048
  6. NIVOLUMAB [Suspect]
     Active Substance: NIVOLUMAB
     Indication: METASTATIC MALIGNANT MELANOMA
     Dosage: UNK
     Route: 065
     Dates: start: 201711
  7. NIVOLUMAB [Suspect]
     Active Substance: NIVOLUMAB
     Dosage: 11TH DOSE
     Route: 065
     Dates: start: 20190208
  8. DEXAMETHASONE. [Concomitant]
     Active Substance: DEXAMETHASONE
     Indication: METASTASES TO CENTRAL NERVOUS SYSTEM
     Dosage: 4 MILLIGRAM, BID
     Route: 048
  9. IPILIMUMAB [Suspect]
     Active Substance: IPILIMUMAB
     Indication: METASTATIC MALIGNANT MELANOMA
     Dosage: 350 MILLIGRAM 2ND DOSE
     Route: 065
     Dates: start: 20180725
  10. IPILIMUMAB [Suspect]
     Active Substance: IPILIMUMAB
     Dosage: 350 MILLIGRAM 3RD DOSE
     Route: 065
     Dates: start: 20180817

REACTIONS (9)
  - Multiple organ dysfunction syndrome [Unknown]
  - Septic shock [Unknown]
  - Intentional product use issue [Unknown]
  - Peritonitis [Unknown]
  - Pancreatitis acute [Unknown]
  - Large intestine perforation [Unknown]
  - Dry mouth [Unknown]
  - Fournier^s gangrene [Recovered/Resolved]
  - Immune-mediated enterocolitis [Recovered/Resolved]

NARRATIVE: CASE EVENT DATE: 20180810
